FAERS Safety Report 8427965-5 (Version None)
Quarter: 2012Q2

REPORT INFORMATION
  Report Type: 
  Country: None (occurrence: None)
  Receive Date: 20120611
  Receipt Date: 20120601
  Transmission Date: 20120825
  Serious: Yes (Other)
  Sender: FDA-Public Use
  Company Number: US-JNJFOC-20120602490

PATIENT

DRUGS (2)
  1. INVEGA SUSTENNA [Suspect]
     Indication: PRODUCT USED FOR UNKNOWN INDICATION
     Route: 030
  2. OTHER THERAPEUTIC PRODUCT UNSPECIFIED [Concomitant]

REACTIONS (3)
  - SUICIDAL IDEATION [None]
  - AFFECT LABILITY [None]
  - FEELING ABNORMAL [None]
